FAERS Safety Report 17279686 (Version 2)
Quarter: 2020Q1

REPORT INFORMATION
  Report Type: Spontaneous
  Country: EG (occurrence: EG)
  Receive Date: 20200116
  Receipt Date: 20200313
  Transmission Date: 20200409
  Serious: Yes (Death, Hospitalization)
  Sender: FDA-Public Use
  Company Number: EG-CYCLE PHARMACEUTICALS LTD-2020-CYC-000001

PATIENT
  Age: 7 Month
  Sex: Male
  Weight: 8 kg

DRUGS (2)
  1. NITYR [Suspect]
     Active Substance: NITISINONE
     Indication: TYROSINAEMIA
     Dosage: 1 MG/KG/DAY, QD
     Route: 048
     Dates: start: 20191230, end: 20200105
  2. URSODEOXYCHOLIC ACID [Concomitant]
     Active Substance: URSODIOL
     Indication: JAUNDICE
     Dosage: 20 MG/KG, BID
     Route: 048
     Dates: start: 20191020, end: 20200105

REACTIONS (8)
  - Pneumonia [Fatal]
  - Respiratory distress [Fatal]
  - Respiratory failure [Fatal]
  - Product complaint [Unknown]
  - Pyrexia [Fatal]
  - Tachypnoea [Fatal]
  - Grunting [Fatal]
  - Cough [Fatal]

NARRATIVE: CASE EVENT DATE: 20200101
